FAERS Safety Report 16309170 (Version 2)
Quarter: 2019Q2

REPORT INFORMATION
  Report Type: Spontaneous
  Country: FR (occurrence: FR)
  Receive Date: 20190514
  Receipt Date: 20190520
  Transmission Date: 20190711
  Serious: Yes (Death, Hospitalization)
  Sender: FDA-Public Use
  Company Number: FR-PFIZER INC-2019204316

PATIENT
  Age: 71 Year
  Sex: Male

DRUGS (1)
  1. CORDARONE [Suspect]
     Active Substance: AMIODARONE HYDROCHLORIDE
     Indication: ATRIAL FLUTTER
     Dosage: 200 MG, QD
     Route: 048
     Dates: start: 2015, end: 20181017

REACTIONS (1)
  - Hyperthyroidism [Fatal]

NARRATIVE: CASE EVENT DATE: 201811
